FAERS Safety Report 4405127-6 (Version None)
Quarter: 2004Q3

REPORT INFORMATION
  Report Type: 
  Country: None (occurrence: None)
  Receive Date: 20040719
  Receipt Date: 20040701
  Transmission Date: 20050211
  Serious: Yes (Death, Hospitalization)
  Sender: FDA-Public Use
  Company Number: 198119

PATIENT
  Sex: Female
  Weight: 104.3273 kg

DRUGS (1)
  1. AVONEX [Suspect]
     Indication: MULTIPLE SCLEROSIS
     Dates: start: 19990101

REACTIONS (13)
  - COLOSTOMY [None]
  - DECUBITUS ULCER [None]
  - DEHYDRATION [None]
  - DEPRESSION [None]
  - FALL [None]
  - FRACTURE [None]
  - GALLBLADDER DISORDER [None]
  - GASTROINTESTINAL DISORDER [None]
  - LETHARGY [None]
  - NEPHROLITHIASIS [None]
  - SEPSIS [None]
  - URINARY TRACT INFECTION [None]
  - WEIGHT DECREASED [None]
